FAERS Safety Report 25709465 (Version 3)
Quarter: 2025Q4

REPORT INFORMATION
  Report Type: Spontaneous
  Country: US (occurrence: None)
  Receive Date: 20250821
  Receipt Date: 20251208
  Transmission Date: 20260118
  Serious: Yes (Other)
  Sender: CHIESI
  Company Number: US-CHIESI-2025CHF05730

PATIENT

DRUGS (1)
  1. CUROSURF [Suspect]
     Active Substance: PORACTANT ALFA
     Indication: Product used for unknown indication
     Dosage: 7.5 MILLILITER
     Route: 065

REACTIONS (3)
  - Cyanosis neonatal [Unknown]
  - Endotracheal intubation complication [Unknown]
  - Product complaint [Recovered/Resolved]
